FAERS Safety Report 7076660-6 (Version None)
Quarter: 2010Q4

REPORT INFORMATION
  Report Type: 
  Country: None (occurrence: None)
  Receive Date: 20101101
  Receipt Date: 20101020
  Transmission Date: 20110411
  Serious: Yes (Other)
  Sender: FDA-Public Use
  Company Number: US-PFIZER INC-2010133622

PATIENT
  Age: 52 Year
  Sex: Female
  Weight: 90.703 kg

DRUGS (1)
  1. GEODON [Suspect]
     Indication: PSYCHOTIC DISORDER
     Dosage: 160 MG PER DAY
     Route: 048
     Dates: start: 20050101

REACTIONS (2)
  - CONVULSION [None]
  - COUGH [None]
